FAERS Safety Report 6286424-9 (Version None)
Quarter: 2009Q3

REPORT INFORMATION
  Report Type: 
  Country: None (occurrence: None)
  Receive Date: 20090728
  Receipt Date: 20090720
  Transmission Date: 20100115
  Serious: Yes (Death, Life-Threatening, Hospitalization, Congenital Anomaly)
  Sender: FDA-Public Use
  Company Number: A0679854A

PATIENT
  Sex: Female

DRUGS (3)
  1. PAXIL CR [Suspect]
     Indication: DRUG USE FOR UNKNOWN INDICATION
  2. PAXIL [Suspect]
     Indication: DRUG USE FOR UNKNOWN INDICATION
  3. PAROXETINE HCL [Suspect]
     Indication: DRUG USE FOR UNKNOWN INDICATION

REACTIONS (27)
  - ATRIAL FLUTTER [None]
  - ATRIAL SEPTAL DEFECT [None]
  - CAESAREAN SECTION [None]
  - CARDIAC FAILURE CONGESTIVE [None]
  - CARDIOMEGALY [None]
  - CONGENITAL AORTIC STENOSIS [None]
  - CONGENITAL MITRAL VALVE STENOSIS [None]
  - DEATH [None]
  - DEVELOPMENTAL DELAY [None]
  - DOUBLE OUTLET RIGHT VENTRICLE [None]
  - DRUG EXPOSURE DURING PREGNANCY [None]
  - FEEDING DISORDER NEONATAL [None]
  - HYPOPLASTIC LEFT HEART SYNDROME [None]
  - INTESTINAL MALROTATION [None]
  - JAUNDICE NEONATAL [None]
  - LUNG DISORDER [None]
  - MITRAL VALVE DISEASE [None]
  - MITRAL VALVE HYPOPLASIA [None]
  - PATENT DUCTUS ARTERIOSUS [None]
  - PLEURAL EFFUSION [None]
  - PREMATURE BABY [None]
  - RIGHT VENTRICULAR HYPERTROPHY [None]
  - SCOLIOSIS [None]
  - SEPSIS NEONATAL [None]
  - SICK SINUS SYNDROME [None]
  - SPINE MALFORMATION [None]
  - TRICUSPID VALVE INCOMPETENCE [None]
